FAERS Safety Report 15409171 (Version 2)
Quarter: 2018Q4

REPORT INFORMATION
  Report Type: Report from Study
  Country: US (occurrence: US)
  Receive Date: 20180920
  Receipt Date: 20181019
  Transmission Date: 20190204
  Serious: Yes (Hospitalization)
  Sender: FDA-Public Use
  Company Number: PHEH2018US038477

PATIENT
  Sex: Male

DRUGS (2)
  1. COSENTYX [Suspect]
     Active Substance: SECUKINUMAB
     Indication: PSORIASIS
     Dosage: 300 MG, QMO
     Route: 058
  2. COSENTYX [Suspect]
     Active Substance: SECUKINUMAB
     Indication: PSORIATIC ARTHROPATHY

REACTIONS (10)
  - Photophobia [Unknown]
  - Cardiac disorder [Unknown]
  - Eye disorder [Unknown]
  - Arthralgia [Unknown]
  - Drug ineffective [Unknown]
  - Vision blurred [Unknown]
  - Inflammation [Unknown]
  - Dyspnoea [Unknown]
  - Blood pressure decreased [Unknown]
  - Rhinorrhoea [Unknown]
